FAERS Safety Report 12528265 (Version 2)
Quarter: 2016Q3

REPORT INFORMATION
  Report Type: Spontaneous
  Country: US (occurrence: US)
  Receive Date: 20160705
  Receipt Date: 20160708
  Transmission Date: 20161109
  Serious: Yes (Hospitalization, Other)
  Sender: FDA-Public Use
  Company Number: US-PFIZER INC-2016324919

PATIENT
  Age: 65 Year
  Sex: Female
  Weight: 61.23 kg

DRUGS (1)
  1. DILANTIN [Suspect]
     Active Substance: PHENYTOIN
     Indication: SEIZURE

REACTIONS (10)
  - Head injury [Unknown]
  - Blindness transient [Recovered/Resolved]
  - Drug ineffective [Unknown]
  - Hip fracture [Unknown]
  - Eye haemorrhage [Unknown]
  - Peripheral swelling [Unknown]
  - Malabsorption [Unknown]
  - Thyroid function test abnormal [Unknown]
  - Fall [Unknown]
  - Neovascular age-related macular degeneration [Unknown]

NARRATIVE: CASE EVENT DATE: 201112
